FAERS Safety Report 5094576-1 (Version None)
Quarter: 2006Q3

REPORT INFORMATION
  Report Type: 
  Country: None (occurrence: None)
  Receive Date: 20060731
  Receipt Date: 20060429
  Transmission Date: 20061208
  Serious: No
  Sender: FDA-Public Use
  Company Number: 2006PV013018

PATIENT
  Age: 75 Year
  Sex: Female
  Weight: 99.7913 kg

DRUGS (6)
  1. BYETTA [Suspect]
     Indication: DIABETES MELLITUS NON-INSULIN-DEPENDENT
     Dosage: 5 MCG; BID; SC
     Route: 058
     Dates: start: 20060428
  2. GLIPIZIDE [Concomitant]
  3. GLYSET [Concomitant]
  4. STARLIX [Concomitant]
  5. LISINOPRIL [Concomitant]
  6. QUANFACINE [Concomitant]

REACTIONS (1)
  - BLOOD GLUCOSE INCREASED [None]
